FAERS Safety Report 7655809-8 (Version None)
Quarter: 2011Q3

REPORT INFORMATION
  Report Type: 
  Country: None (occurrence: None)
  Receive Date: 20110801
  Receipt Date: 20110727
  Transmission Date: 20111222
  Serious: Yes (Hospitalization, Other)
  Sender: FDA-Public Use
  Company Number: DKLU1070824

PATIENT
  Age: 9 Month
  Sex: Male

DRUGS (7)
  1. TRI-VI-SOL (HALIBORANGE /00262101/) [Concomitant]
  2. SABRIL [Suspect]
     Indication: INFANTILE SPASMS
     Dosage: SEE IMAGE
     Route: 048
     Dates: start: 20110501
  3. SABRIL [Suspect]
     Indication: INFANTILE SPASMS
     Dosage: SEE IMAGE
     Route: 048
     Dates: end: 20110501
  4. SABRIL [Suspect]
     Indication: INFANTILE SPASMS
     Dosage: SEE IMAGE
     Route: 048
     Dates: start: 20110501, end: 20110101
  5. DEPAKENE (VALPROIC ACID) (SYRUP) [Concomitant]
  6. TAURINE (TAURINE) [Concomitant]
  7. PREVACID (LANSOPRAZOLE) (GRANULES) [Concomitant]

REACTIONS (7)
  - COUGH [None]
  - FEEDING DISORDER [None]
  - POST PROCEDURAL COMPLICATION [None]
  - HYPERSOMNIA [None]
  - RESPIRATORY DISTRESS [None]
  - EPILEPSY [None]
  - GRUNTING [None]
